FAERS Safety Report 25712043 (Version 2)
Quarter: 2025Q4

REPORT INFORMATION
  Report Type: Spontaneous
  Country: US (occurrence: US)
  Receive Date: 20250821
  Receipt Date: 20251013
  Transmission Date: 20260118
  Serious: No
  Sender: PFIZER
  Company Number: US-PFIZER INC-202500166536

PATIENT
  Age: 67 Year
  Sex: Female
  Weight: 58.06 kg

DRUGS (1)
  1. GENOTROPIN [Suspect]
     Active Substance: SOMATROPIN
     Indication: Hypothalamo-pituitary disorder
     Dosage: 0.4 MG, 1X/DAY (EITHER HER THIGH OR HER BELLY)
     Dates: start: 202305

REACTIONS (1)
  - Therapeutic response unexpected [Unknown]
